FAERS Safety Report 9113214 (Version 1)
Quarter: 2013Q1

REPORT INFORMATION
  Report Type: Spontaneous
  Country: GB (occurrence: GB)
  Receive Date: 20130211
  Receipt Date: 20130211
  Transmission Date: 20140127
  Serious: Yes (Other)
  Sender: FDA-Public Use
  Company Number: GB-VERTEX PHARMACEUTICALS INC.-2013-001843

PATIENT
  Age: 34 Year
  Sex: Male
  Weight: 89.2 kg

DRUGS (3)
  1. INCIVO [Suspect]
     Indication: HEPATITIS C
     Dosage: 750 MG, TID
     Route: 048
     Dates: start: 20121106
  2. RIBAVIRIN [Suspect]
     Indication: HEPATITIS C
     Dosage: 1.2 G, BID
     Route: 048
     Dates: start: 20121106
  3. PEGASYS [Suspect]
     Indication: HEPATITIS C
     Dosage: 180 ?G, QW
     Route: 058
     Dates: start: 20121106

REACTIONS (5)
  - Skin burning sensation [Recovered/Resolved]
  - Pruritus [Not Recovered/Not Resolved]
  - Urticaria [Recovered/Resolved]
  - Paraesthesia [Recovered/Resolved]
  - Peripheral sensory neuropathy [Unknown]
